FAERS Safety Report 16085109 (Version 2)
Quarter: 2019Q1

REPORT INFORMATION
  Report Type: Spontaneous
  Country: ES (occurrence: ES)
  Receive Date: 20190318
  Receipt Date: 20190319
  Transmission Date: 20190418
  Serious: Yes (Death)
  Sender: FDA-Public Use
  Company Number: ES-PFIZER INC-2019114864

PATIENT
  Age: 15 Year
  Sex: Female

DRUGS (21)
  1. METHOTREXATE SODIUM. [Suspect]
     Active Substance: METHOTREXATE SODIUM
     Dosage: UNK, CYCLIC (CUMULATIVE DOSE 246 G/M2)
  2. METHOTREXATE SODIUM. [Suspect]
     Active Substance: METHOTREXATE SODIUM
     Indication: GRAFT VERSUS HOST DISEASE
     Dosage: UNK (6 COURSES OF METHOTREXATE 10 G/M2/WEEK EVERY FOURTH WEEK)
  3. VINCRISTINE SULFATE. [Suspect]
     Active Substance: VINCRISTINE SULFATE
     Indication: OSTEOSARCOMA
     Dosage: 1.75 MG/M2, CYCLIC (3 COURSES)
     Dates: start: 198902
  4. CYTARABINE. [Suspect]
     Active Substance: CYTARABINE
     Dosage: UNK, CYCLIC, 1 G/M2 X 6 DAYS
  5. BLEOMYCIN [Suspect]
     Active Substance: BLEOMYCIN SULFATE
     Indication: OSTEOSARCOMA
     Dosage: 30 MG/M2, CYCLIC
  6. CARBOPLATIN. [Suspect]
     Active Substance: CARBOPLATIN
     Dosage: 600 MG/M2, CYCLIC (10 ADDITIONAL COURSES)
     Dates: start: 199312, end: 199410
  7. DOXORUBICIN HCL [Suspect]
     Active Substance: DOXORUBICIN HYDROCHLORIDE
     Dosage: 50 MG/M2, CYCLIC (7 COURSES)
  8. IFOSFAMIDE. [Suspect]
     Active Substance: IFOSFAMIDE
     Indication: OSTEOSARCOMA
     Dosage: UNK, CYCLIC, (4.5 G/M2)
  9. CARBOPLATIN. [Suspect]
     Active Substance: CARBOPLATIN
     Indication: OSTEOSARCOMA
     Dosage: 150 MG/M2, CYCLIC (3 CYCLES) (X3 DAYS ADMINISTERED AT 3-WEEK INTERVALS )
     Route: 013
     Dates: start: 198902
  10. CYTARABINE. [Suspect]
     Active Substance: CYTARABINE
     Dosage: 100 MG/M2, CYCLIC
  11. DOXORUBICIN HCL [Suspect]
     Active Substance: DOXORUBICIN HYDROCHLORIDE
     Dosage: UNK, CYCLIC (CUMULATIVE DOSE 570 MG/M2)
  12. CARBOPLATIN. [Suspect]
     Active Substance: CARBOPLATIN
     Dosage: 100 MG/M2, CYCLIC (7 COURSES)
  13. CISPLATIN. [Suspect]
     Active Substance: CISPLATIN
     Indication: OSTEOSARCOMA
     Dosage: UNK, CYCLIC (CUMULATIVE DOSE 280 MG/M2)
  14. ETOPOSIDE. [Suspect]
     Active Substance: ETOPOSIDE
     Indication: OSTEOSARCOMA
     Dosage: 400 MG/M2, CYCLIC (10 ADDITIONAL COURSES)
     Dates: start: 199312, end: 199410
  15. DACTINOMYCIN [Suspect]
     Active Substance: DACTINOMYCIN
     Indication: OSTEOSARCOMA
     Dosage: 1.8 MG/M2, CYCLIC
  16. CISPLATIN. [Suspect]
     Active Substance: CISPLATIN
     Dosage: 40 MG/M2, CYCLIC
  17. METHOTREXATE SODIUM. [Suspect]
     Active Substance: METHOTREXATE SODIUM
     Dosage: UNK, CYCLIC, (HIGH DOSES 15 G/M2)
     Dates: start: 199312, end: 199410
  18. ETOPOSIDE. [Suspect]
     Active Substance: ETOPOSIDE
     Dosage: 100 MG/M2, CYCLIC
  19. CYTARABINE. [Suspect]
     Active Substance: CYTARABINE
     Indication: OSTEOSARCOMA
     Dosage: UNK (LOW DOSE)
  20. DOXORUBICIN HCL [Suspect]
     Active Substance: DOXORUBICIN HYDROCHLORIDE
     Indication: OSTEOSARCOMA
     Dosage: 90 MG/M2, CYCLIC (3 COURSES)
     Dates: start: 198902
  21. METHOTREXATE SODIUM. [Suspect]
     Active Substance: METHOTREXATE SODIUM
     Indication: OSTEOSARCOMA
     Dosage: UNK, CYCLIC, (3 COURSES OF METHOTREXATE 12 G/M2)
     Dates: start: 198902

REACTIONS (2)
  - Second primary malignancy [Fatal]
  - Acute myeloid leukaemia [Fatal]
